FAERS Safety Report 15651623 (Version 2)
Quarter: 2018Q4

REPORT INFORMATION
  Report Type: Spontaneous
  Country: NL (occurrence: NL)
  Receive Date: 20181123
  Receipt Date: 20181129
  Transmission Date: 20190205
  Serious: Yes (Death)
  Sender: FDA-Public Use
  Company Number: PHHY2018NL163797

PATIENT
  Sex: Male

DRUGS (10)
  1. PRIMPERAN [Concomitant]
     Active Substance: METOCLOPRAMIDE HYDROCHLORIDE
     Indication: PRODUCT USED FOR UNKNOWN INDICATION
     Dosage: ZONODIG 2 X DAAGS 1
     Route: 065
  2. AMOXICILLINE/CLAVULAANZUUR [Suspect]
     Active Substance: AMOXICILLIN\CLAVULANATE POTASSIUM
     Indication: URINARY TRACT INFECTION
     Dosage: 1 ?G/L, Q8H, 3X PER DAG 1 TABLET
     Route: 065
     Dates: start: 20181002
  3. PANTOPRAZOL [Concomitant]
     Active Substance: PANTOPRAZOLE SODIUM
     Indication: PRODUCT USED FOR UNKNOWN INDICATION
     Dosage: 20 MG, QD, 1 DD 1
     Route: 065
     Dates: start: 20170224
  4. ACENOCOUMAROL [Concomitant]
     Active Substance: ACENOCOUMAROL
     Indication: PRODUCT USED FOR UNKNOWN INDICATION
     Dosage: 1 X DAAGS VOLGENS LIJST TROMBOSEDIENST
     Route: 065
  5. PARACETAMOL [Concomitant]
     Active Substance: ACETAMINOPHEN
     Indication: PRODUCT USED FOR UNKNOWN INDICATION
     Dosage: 1000 MG, Q6H, 3 DD 2
     Route: 065
  6. COLECALCIFEROL [Concomitant]
     Active Substance: CHOLECALCIFEROL
     Indication: PRODUCT USED FOR UNKNOWN INDICATION
     Dosage: 1 DD 1
     Route: 065
     Dates: start: 20180205
  7. NOVORAPID [Concomitant]
     Active Substance: INSULIN ASPART
     Indication: PRODUCT USED FOR UNKNOWN INDICATION
     Dosage: 1 ?G/L, UNK, IN OVERLEG MET ARTS
     Route: 065
  8. METOPROLOL. [Concomitant]
     Active Substance: METOPROLOL
     Indication: PRODUCT USED FOR UNKNOWN INDICATION
     Dosage: 25 MG, QD, 1 DD 1
     Route: 065
     Dates: start: 20170224
  9. DERMOVATE [Concomitant]
     Active Substance: CLOBETASOL
     Indication: PRODUCT USED FOR UNKNOWN INDICATION
     Dosage: 1 ?G/L, QD, 1 DD 1 GRAM DUN SMEREN OP MEEST AANGEDANE HUIDPLEKKEN
     Route: 065
  10. RISPERIDON [Concomitant]
     Active Substance: RISPERIDONE
     Indication: PRODUCT USED FOR UNKNOWN INDICATION
     Dosage: 1 DD 0.5 STUKS
     Route: 065
     Dates: start: 20180611

REACTIONS (5)
  - Haematoma [Fatal]
  - Vasculitis [Fatal]
  - Somnolence [Unknown]
  - Skin discolouration [Fatal]
  - Lip swelling [Unknown]
